FAERS Safety Report 20706662 (Version 1)
Quarter: 2022Q2

REPORT INFORMATION
  Report Type: Report from Study
  Country: JP (occurrence: JP)
  Receive Date: 20220413
  Receipt Date: 20220413
  Transmission Date: 20220720
  Serious: Yes (Disabling)
  Sender: FDA-Public Use
  Company Number: JP-Merck Healthcare KGaA-9179357

PATIENT
  Age: 56 Year
  Sex: Male

DRUGS (2)
  1. TEPMETKO [Suspect]
     Active Substance: TEPOTINIB HYDROCHLORIDE
     Indication: Non-small cell lung cancer recurrent
     Route: 048
     Dates: start: 20200803, end: 20201026
  2. TEPMETKO [Suspect]
     Active Substance: TEPOTINIB HYDROCHLORIDE
     Route: 048
     Dates: start: 20201027, end: 20201130

REACTIONS (11)
  - Acute kidney injury [Recovered/Resolved with Sequelae]
  - Blood creatinine increased [Unknown]
  - Myalgia [Recovered/Resolved]
  - Dizziness postural [Recovered/Resolved]
  - Pruritus [Recovering/Resolving]
  - Rash [Recovering/Resolving]
  - Skin hypertrophy [Recovered/Resolved]
  - Diarrhoea [Recovered/Resolved]
  - Oedema [Recovering/Resolving]
  - Aspartate aminotransferase increased [Recovered/Resolved]
  - Alanine aminotransferase increased [Recovered/Resolved]

NARRATIVE: CASE EVENT DATE: 20200803
